FAERS Safety Report 7934407-2 (Version None)
Quarter: 2011Q4

REPORT INFORMATION
  Report Type: 
  Country: None (occurrence: None)
  Receive Date: 20111122
  Receipt Date: 20110922
  Transmission Date: 20120403
  Serious: Yes (Other)
  Sender: FDA-Public Use
  Company Number: US-GLAXOSMITHKLINE-A0945625A

PATIENT
  Age: 42 Year
  Sex: Female

DRUGS (2)
  1. PAXIL [Suspect]
     Indication: DEPRESSION
     Dosage: 20MG PER DAY
     Route: 048
     Dates: start: 20000101
  2. CLONAZEPAM [Concomitant]

REACTIONS (16)
  - PLATELET COUNT DECREASED [None]
  - NERVOUSNESS [None]
  - TERMINAL INSOMNIA [None]
  - MATERNAL EXPOSURE DURING PREGNANCY [None]
  - ALOPECIA [None]
  - BREAST TENDERNESS [None]
  - CARDIAC FLUTTER [None]
  - ARRHYTHMIA [None]
  - LIVE BIRTH [None]
  - PALPITATIONS [None]
  - AGITATION [None]
  - WEIGHT INCREASED [None]
  - ANAEMIA [None]
  - CONSTIPATION [None]
  - INSOMNIA [None]
  - TREMOR [None]
